FAERS Safety Report 25635502 (Version 1)
Quarter: 2025Q3

REPORT INFORMATION
  Report Type: Spontaneous
  Country: US (occurrence: US)
  Receive Date: 20250802
  Receipt Date: 20250802
  Transmission Date: 20251021
  Serious: Yes (Hospitalization, Other)
  Sender: ACCORD
  Company Number: US-Accord-496780

PATIENT
  Age: 64 Year
  Sex: Male
  Weight: 84.3 kg

DRUGS (14)
  1. HYDROCHLOROTHIAZIDE [Suspect]
     Active Substance: HYDROCHLOROTHIAZIDE
     Indication: Hypertension
  2. ENCORAFENIB [Concomitant]
     Active Substance: ENCORAFENIB
     Indication: Hairy cell leukaemia
     Route: 048
     Dates: start: 20211004, end: 20250306
  3. BINIMETINIB [Concomitant]
     Active Substance: BINIMETINIB
     Indication: Hairy cell leukaemia
     Route: 048
     Dates: start: 20211004, end: 20250310
  4. ATORVASTATIN [Concomitant]
     Active Substance: ATORVASTATIN
     Route: 048
  5. VALTREX [Concomitant]
     Active Substance: VALACYCLOVIR HYDROCHLORIDE
     Route: 048
  6. LISINOPRIL [Concomitant]
     Active Substance: LISINOPRIL
     Route: 048
  7. CHLOROTHIAZIDE SODIUM [Concomitant]
     Active Substance: CHLOROTHIAZIDE SODIUM
     Route: 048
  8. VITAMINS [Concomitant]
     Active Substance: VITAMINS
     Route: 048
  9. BINIMETINIB [Concomitant]
     Active Substance: BINIMETINIB
     Indication: Hairy cell leukaemia
     Route: 048
     Dates: start: 20250311, end: 20250318
  10. BINIMETINIB [Concomitant]
     Active Substance: BINIMETINIB
     Indication: Hairy cell leukaemia
     Route: 048
     Dates: start: 20250324, end: 20250325
  11. BINIMETINIB [Concomitant]
     Active Substance: BINIMETINIB
     Indication: Hairy cell leukaemia
     Route: 048
     Dates: start: 20250326, end: 20250401
  12. BINIMETINIB [Concomitant]
     Active Substance: BINIMETINIB
     Indication: Hairy cell leukaemia
     Route: 048
     Dates: start: 20250402, end: 20250406
  13. BINIMETINIB [Concomitant]
     Active Substance: BINIMETINIB
     Indication: Hairy cell leukaemia
     Route: 048
     Dates: start: 20250407, end: 20250515
  14. ENCORAFENIB [Concomitant]
     Active Substance: ENCORAFENIB
     Indication: Hairy cell leukaemia
     Route: 048
     Dates: start: 20250407, end: 20250425

REACTIONS (2)
  - Meningitis [Recovering/Resolving]
  - Hyponatraemia [Recovering/Resolving]

NARRATIVE: CASE EVENT DATE: 20250407
